FAERS Safety Report 8314416-4 (Version None)
Quarter: 2012Q2

REPORT INFORMATION
  Report Type: 
  Country: None (occurrence: None)
  Receive Date: 20120426
  Receipt Date: 20120417
  Transmission Date: 20120825
  Serious: Yes (Other)
  Sender: FDA-Public Use
  Company Number: CA-SANOFI-AVENTIS-2012SA026955

PATIENT
  Age: 70 Year
  Sex: Female

DRUGS (1)
  1. PLAQUENIL [Suspect]
     Route: 048
     Dates: start: 19970101

REACTIONS (2)
  - VISION BLURRED [None]
  - OCULAR VASCULITIS [None]
